FAERS Safety Report 7675309-9 (Version None)
Quarter: 2011Q3

REPORT INFORMATION
  Report Type: 
  Country: None (occurrence: None)
  Receive Date: 20110810
  Receipt Date: 20110805
  Transmission Date: 20111222
  Serious: Yes (Death, Life-Threatening, Hospitalization)
  Sender: FDA-Public Use
  Company Number: FR-ELI_LILLY_AND_COMPANY-FR201108001863

PATIENT
  Sex: Male
  Weight: 65 kg

DRUGS (13)
  1. GLUCOPHAGE [Concomitant]
     Dosage: 850 MG, BID
     Route: 065
  2. EMEND [Concomitant]
     Dosage: UNK, UNKNOWN
     Route: 048
  3. PLAVIX [Concomitant]
     Dosage: UNK, QD
     Route: 065
  4. EPINEPHRINE [Concomitant]
     Dosage: 50 MG, EVERY HOUR
     Route: 065
  5. ASPEGIC 325 [Concomitant]
     Dosage: UNK, UNKNOWN
     Route: 065
  6. VITAMIN B-12 [Concomitant]
     Dosage: UNK, UNKNOWN
     Route: 065
  7. TENORMIN [Concomitant]
     Dosage: UNK, UNKNOWN
     Route: 065
  8. FOLIC ACID [Concomitant]
     Dosage: UNK, UNKNOWN
     Route: 065
  9. GLYBURIDE [Concomitant]
     Dosage: UNK, BID
     Route: 065
  10. ALIMTA [Suspect]
     Dosage: 500 MG/M2, UNKNOWN
     Route: 042
     Dates: start: 20100906, end: 20100906
  11. ELOXATIN [Concomitant]
     Dosage: 100 MG/M2, UNKNOWN
     Route: 042
     Dates: start: 20100906, end: 20100906
  12. ATORVASTATIN CALCIUM [Concomitant]
     Dosage: UNK, UNKNOWN
     Route: 065
  13. OMEPRAZOLE [Concomitant]
     Dosage: 20 MG, QD
     Route: 065
     Dates: start: 20100906

REACTIONS (6)
  - MULTI-ORGAN FAILURE [None]
  - SEPTIC SHOCK [None]
  - PYREXIA [None]
  - AGRANULOCYTOSIS [None]
  - DIARRHOEA [None]
  - VOMITING [None]
